FAERS Safety Report 5646719-6 (Version None)
Quarter: 2008Q1

REPORT INFORMATION
  Report Type: 
  Country: None (occurrence: None)
  Receive Date: 20080228
  Receipt Date: 20080213
  Transmission Date: 20080703
  Serious: Yes (Disabling)
  Sender: FDA-Public Use
  Company Number: 2008S1002388

PATIENT
  Age: 68 Year
  Sex: Female

DRUGS (12)
  1. GENOX (NO PREF. NAME) (10 MG) [Suspect]
     Indication: BREAST CANCER
     Dosage: 10 MG DAILY ORAL
     Route: 048
     Dates: start: 20080101
  2. ZANIDIP [Concomitant]
  3. ASPIRIN [Concomitant]
  4. NEXIUM [Concomitant]
  5. COVERSYL [Concomitant]
  6. ALPHAPRESS [Concomitant]
  7. PANAMAX [Concomitant]
  8. CALTRATE [Concomitant]
  9. HYDOPA [Concomitant]
  10. SEREPAX [Concomitant]
  11. FISH OIL [Concomitant]
  12. GLUCOSAMINE [Concomitant]

REACTIONS (4)
  - JOINT SWELLING [None]
  - MOBILITY DECREASED [None]
  - OEDEMA PERIPHERAL [None]
  - WALKING AID USER [None]
